FAERS Safety Report 14172516 (Version 1)
Quarter: 2017Q4

REPORT INFORMATION
  Report Type: Spontaneous
  Country: US (occurrence: US)
  Receive Date: 20171108
  Receipt Date: 20171108
  Transmission Date: 20180321
  Serious: Yes (Disabling)
  Sender: FDA-Public Use
  Company Number: None

PATIENT
  Age: 37 Year
  Sex: Female
  Weight: 87.75 kg

DRUGS (1)
  1. NORTREL 21 DAY [Suspect]
     Active Substance: ETHINYL ESTRADIOL\NORETHINDRONE
     Indication: MENSTRUAL CYCLE MANAGEMENT
     Dosage: ?          QUANTITY:1 TABLET(S);?
     Route: 048
     Dates: start: 20171016, end: 20171106

REACTIONS (4)
  - Product use issue [None]
  - Menorrhagia [None]
  - Muscle spasms [None]
  - Drug ineffective [None]

NARRATIVE: CASE EVENT DATE: 20171016
